FAERS Safety Report 7814549-2 (Version None)
Quarter: 2011Q4

REPORT INFORMATION
  Report Type: 
  Country: None (occurrence: None)
  Receive Date: 20111014
  Receipt Date: 20111006
  Transmission Date: 20120403
  Serious: Yes (Hospitalization)
  Sender: FDA-Public Use
  Company Number: LU-MILLENNIUM PHARMACEUTICALS, INC.-2011-04743

PATIENT

DRUGS (2)
  1. DEXAMETHASONE [Concomitant]
     Dosage: 20 MG, UNK
  2. VELCADE [Suspect]
     Dosage: 1.3 MG/M2, UNK
     Route: 065

REACTIONS (2)
  - RASH [None]
  - EOSINOPHILIA [None]
